FAERS Safety Report 21793136 (Version 1)
Quarter: 2022Q4

REPORT INFORMATION
  Report Type: Spontaneous
  Country: US (occurrence: US)
  Receive Date: 20221229
  Receipt Date: 20221229
  Transmission Date: 20230113
  Serious: Yes (Hospitalization)
  Sender: FDA-Public Use
  Company Number: US-CELLTRION INC.-2022US021679

PATIENT

DRUGS (2)
  1. TRUXIMA [Suspect]
     Active Substance: RITUXIMAB-ABBS
     Indication: Product used for unknown indication
     Dosage: 10 UNK
     Dates: start: 20210422
  2. RITUXAN [Concomitant]
     Active Substance: RITUXIMAB
     Dosage: UNK
     Dates: start: 20221001

REACTIONS (3)
  - COVID-19 [Recovered/Resolved]
  - Lung disorder [Unknown]
  - Product substitution [Unknown]

NARRATIVE: CASE EVENT DATE: 20211023
